FAERS Safety Report 9626355 (Version 1)
Quarter: 2013Q4

REPORT INFORMATION
  Report Type: Spontaneous
  Country: US (occurrence: US)
  Receive Date: 20131016
  Receipt Date: 20131016
  Transmission Date: 20140711
  Serious: No
  Sender: FDA-Public Use
  Company Number: US-009507513-1309USA010226

PATIENT
  Age: 34 Year
  Sex: Female

DRUGS (3)
  1. NEXPLANON [Suspect]
     Indication: CONTRACEPTION
     Dosage: UNK
     Route: 059
     Dates: start: 20130605, end: 20130903
  2. NEXPLANON [Suspect]
     Dosage: UNK
     Dates: start: 20130903
  3. FLUOXETINE [Concomitant]
     Dosage: 40 MG, QD

REACTIONS (4)
  - Contusion [Recovered/Resolved]
  - Neuralgia [Recovered/Resolved]
  - Device dislocation [Recovered/Resolved]
  - Amenorrhoea [Unknown]
